FAERS Safety Report 5968959-9 (Version None)
Quarter: 2008Q4

REPORT INFORMATION
  Report Type: 
  Country: None (occurrence: None)
  Receive Date: 20081125
  Receipt Date: 20081125
  Transmission Date: 20090506
  Serious: Yes (Hospitalization)
  Sender: FDA-Public Use
  Company Number: None

PATIENT
  Sex: Male
  Weight: 70.3075 kg

DRUGS (1)
  1. ISOSORBIDE MONONITRATE [Suspect]
     Indication: CARDIAC FAILURE CONGESTIVE
     Dosage: 60MG 1 PER DAY PO
     Route: 048
     Dates: start: 20000915, end: 20081124

REACTIONS (7)
  - BLOOD PRESSURE DECREASED [None]
  - FALL [None]
  - GAIT DISTURBANCE [None]
  - HIP FRACTURE [None]
  - MULTIPLE INJURIES [None]
  - OVERDOSE [None]
  - PRODUCT QUALITY ISSUE [None]
